FAERS Safety Report 20594337 (Version 1)
Quarter: 2022Q1

REPORT INFORMATION
  Report Type: Spontaneous
  Country: US (occurrence: US)
  Receive Date: 20220315
  Receipt Date: 20220315
  Transmission Date: 20220424
  Serious: No
  Sender: FDA-Public Use
  Company Number: US-ALLERGAN-2127730US

PATIENT
  Sex: Male

DRUGS (3)
  1. NORCO [Suspect]
     Active Substance: ACETAMINOPHEN\HYDROCODONE BITARTRATE
     Indication: Back pain
     Dosage: START DATE: A COUPLE YEARS AGO, ONCE
     Route: 048
  2. VIVITROL [Concomitant]
     Active Substance: NALTREXONE
     Indication: Alcoholism
     Dosage: 380 MG, Q MONTH
     Route: 030
     Dates: start: 2020, end: 2020
  3. VIVITROL [Concomitant]
     Active Substance: NALTREXONE
     Dosage: 380 MG, Q MONTH
     Route: 030
     Dates: start: 20190628, end: 20190628

REACTIONS (1)
  - Nausea [Recovered/Resolved]
